FAERS Safety Report 11325015 (Version 2)
Quarter: 2015Q3

REPORT INFORMATION
  Report Type: Spontaneous
  Country: JP (occurrence: JP)
  Receive Date: 20150730
  Receipt Date: 20150826
  Transmission Date: 20151125
  Serious: Yes (Other)
  Sender: FDA-Public Use
  Company Number: JP-PFIZER INC-2015252168

PATIENT
  Age: 69 Year
  Sex: Female
  Weight: 57 kg

DRUGS (12)
  1. LYRICA [Concomitant]
     Active Substance: PREGABALIN
     Dosage: 25 MG, UNK
     Dates: start: 20120302
  2. TOUCHRON [Concomitant]
     Dosage: 30,UNK
     Dates: start: 20120427
  3. ALENDRONATE [Concomitant]
     Active Substance: ALENDRONATE SODIUM
     Dosage: 35 MG, UNK
     Dates: start: 20150309
  4. HICORT [Concomitant]
     Dosage: UNK
     Dates: start: 20150508, end: 20150508
  5. CELECOX [Suspect]
     Active Substance: CELECOXIB
     Indication: INTERVERTEBRAL DISC PROTRUSION
     Dosage: 100 MG, 2X/DAY
     Route: 048
     Dates: start: 20150508, end: 20150508
  6. EDIROL [Concomitant]
     Active Substance: ELDECALCITOL
     Dosage: 0.75 ?G, UNK
     Dates: start: 20120302
  7. NEUROTROPIN /06251301/ [Concomitant]
     Dosage: UNK
     Dates: start: 20150508, end: 20150508
  8. SHAKUYAKUKANZOBUSHITO [Concomitant]
     Dosage: UNK
     Dates: start: 20150223
  9. CELECOX [Suspect]
     Active Substance: CELECOXIB
     Indication: BACK PAIN
  10. DIBCALSOR [Concomitant]
     Active Substance: CALCIUM BROMIDE\DIBUCAINE HYDROCHLORIDE\SODIUM SALICYLATE
     Dosage: UNK
     Dates: start: 20150508, end: 20150508
  11. CELECOX [Suspect]
     Active Substance: CELECOXIB
     Indication: SCIATICA
  12. CRESTOR [Concomitant]
     Active Substance: ROSUVASTATIN CALCIUM
     Dosage: UNK
     Dates: start: 20111024

REACTIONS (3)
  - Generalised erythema [Recovered/Resolved]
  - Pruritus [Recovered/Resolved]
  - Urticaria [Recovered/Resolved]

NARRATIVE: CASE EVENT DATE: 20150508
